FAERS Safety Report 9271749 (Version 1)
Quarter: 2013Q2

REPORT INFORMATION
  Report Type: Spontaneous
  Country: US (occurrence: US)
  Receive Date: 20130506
  Receipt Date: 20130506
  Transmission Date: 20140414
  Serious: Yes (Hospitalization)
  Sender: FDA-Public Use
  Company Number: US-BRISTOL-MYERS SQUIBB COMPANY-18833384

PATIENT
  Age: 66 Year
  Sex: Male

DRUGS (1)
  1. ORENCIA [Suspect]
     Dosage: RECENT DOSE 18APR2013
     Route: 042

REACTIONS (2)
  - Pneumothorax [Unknown]
  - Oropharyngeal pain [Unknown]
